FAERS Safety Report 15286116 (Version 1)
Quarter: 2018Q3

REPORT INFORMATION
  Report Type: Spontaneous
  Country: US (occurrence: US)
  Receive Date: 20180802
  Receipt Date: 20180802
  Transmission Date: 20181010
  Serious: Yes (Death)
  Sender: FDA-Public Use
  Company Number: None

PATIENT
  Sex: Female

DRUGS (6)
  1. AMLODIPINE 2.5MG [Concomitant]
     Active Substance: AMLODIPINE BESYLATE
  2. ATORVASTATIN 10MG [Concomitant]
     Active Substance: ATORVASTATIN
  3. VITAMIN D 50000 UNITS [Concomitant]
  4. SENSIPAR [Suspect]
     Active Substance: CINACALCET HYDROCHLORIDE
     Indication: HYPERPARATHYROIDISM
     Route: 048
     Dates: start: 20180301
  5. MYRBETRIQ 50MG [Concomitant]
  6. LISINOPRIL 10MG [Concomitant]
     Active Substance: LISINOPRIL

REACTIONS (1)
  - Death [None]
